FAERS Safety Report 4712097-X (Version None)
Quarter: 2005Q3

REPORT INFORMATION
  Report Type: 
  Country: None (occurrence: None)
  Receive Date: 20050712
  Receipt Date: 20050330
  Transmission Date: 20060218
  Serious: Yes (Other)
  Sender: FDA-Public Use
  Company Number: PHEH2005US03910

PATIENT
  Age: 23 Year
  Sex: Male

DRUGS (2)
  1. LAMISIL [Suspect]
     Indication: NAIL TINEA
     Dosage: 250 MG, QD
     Route: 048
     Dates: start: 20050301, end: 20050322
  2. TRILEPTAL [Suspect]
     Indication: CONVULSION
     Route: 048

REACTIONS (1)
  - CONVULSION [None]
